FAERS Safety Report 12864636 (Version 1)
Quarter: 2016Q4

REPORT INFORMATION
  Report Type: Spontaneous
  Country: US (occurrence: US)
  Receive Date: 20161020
  Receipt Date: 20161020
  Transmission Date: 20170207
  Serious: No
  Sender: FDA-Public Use
  Company Number: US-TEVA-668764USA

PATIENT
  Sex: Male

DRUGS (1)
  1. METRONIDAZOLE. [Suspect]
     Active Substance: METRONIDAZOLE
     Route: 048

REACTIONS (7)
  - Product physical issue [Unknown]
  - Product difficult to swallow [Unknown]
  - Dysphagia [Unknown]
  - Dysgeusia [Unknown]
  - Retching [Unknown]
  - Product taste abnormal [Unknown]
  - Vomiting [Unknown]
